FAERS Safety Report 4861851-2 (Version None)
Quarter: 2005Q4

REPORT INFORMATION
  Report Type: 
  Country: None (occurrence: None)
  Receive Date: 20051130
  Receipt Date: 20041007
  Transmission Date: 20060501
  Serious: Yes (Other)
  Sender: FDA-Public Use
  Company Number: 2004237744US

PATIENT
  Age: 72 Year
  Sex: Female

DRUGS (6)
  1. ZYVOX [Suspect]
     Dosage: ORAL
     Route: 048
     Dates: start: 20030201, end: 20031001
  2. VANCOMYCIN [Concomitant]
  3. FORTAZ [Concomitant]
  4. ZOSYN [Concomitant]
  5. NEURONTIN [Concomitant]
  6. ELAVIL [Concomitant]

REACTIONS (1)
  - OPTIC NEUROPATHY [None]
